FAERS Safety Report 4367583-1 (Version None)
Quarter: 2004Q2

REPORT INFORMATION
  Report Type: 
  Country: None (occurrence: None)
  Receive Date: 20040601
  Receipt Date: 20020506
  Transmission Date: 20050107
  Serious: Yes (Hospitalization, Disabling, Other)
  Sender: FDA-Public Use
  Company Number: US-MERCK-0205USA00968

PATIENT
  Age: 77 Year
  Sex: Male
  Weight: 86 kg

DRUGS (13)
  1. VALIUM [Concomitant]
     Route: 065
  2. NEURONTIN [Concomitant]
     Indication: LIMB DISCOMFORT
     Route: 065
     Dates: end: 20010101
  3. NEURONTIN [Concomitant]
     Route: 065
     Dates: start: 20010504
  4. NEURONTIN [Concomitant]
     Indication: HYPOAESTHESIA
     Route: 065
     Dates: end: 20010101
  5. NEURONTIN [Concomitant]
     Route: 065
     Dates: start: 20010504
  6. AVAPRO [Concomitant]
     Route: 065
  7. MISOPROSTOL [Concomitant]
     Route: 065
  8. MACRODANTIN [Concomitant]
     Route: 065
     Dates: end: 20010504
  9. NORTRIPTYLINE [Concomitant]
     Route: 065
     Dates: end: 20010101
  10. NORTRIPTYLINE [Concomitant]
     Route: 065
     Dates: start: 20010504
  11. VIOXX [Suspect]
     Indication: PAIN
     Route: 048
     Dates: start: 20010401, end: 20010419
  12. VIOXX [Suspect]
     Route: 048
     Dates: start: 20010420, end: 20010504
  13. VIOXX [Suspect]
     Route: 048
     Dates: start: 20010510, end: 20010501

REACTIONS (40)
  - AMNESIA [None]
  - APATHY [None]
  - ASTHENIA [None]
  - AUTONOMIC NERVOUS SYSTEM IMBALANCE [None]
  - BLOOD BILIRUBIN UNCONJUGATED INCREASED [None]
  - BLOOD PRESSURE INCREASED [None]
  - BRADYCARDIA [None]
  - CHRONIC OBSTRUCTIVE AIRWAYS DISEASE [None]
  - CITROBACTER INFECTION [None]
  - CONSTIPATION [None]
  - DEHYDRATION [None]
  - DEMENTIA [None]
  - DEPRESSION [None]
  - DIVERTICULUM [None]
  - ENTEROBACTER INFECTION [None]
  - FALL [None]
  - FEELING COLD [None]
  - FEMUR FRACTURE [None]
  - GASTRITIS [None]
  - HAEMORRHAGIC STROKE [None]
  - HIATUS HERNIA [None]
  - HYPERGLYCAEMIA [None]
  - HYPONATRAEMIA [None]
  - INAPPROPRIATE ANTIDIURETIC HORMONE SECRETION [None]
  - INTERSTITIAL LUNG DISEASE [None]
  - LIPOMA [None]
  - LUNG NEOPLASM [None]
  - OTITIS MEDIA [None]
  - PAIN [None]
  - PELVIC PAIN [None]
  - POLLAKIURIA [None]
  - PROCTITIS [None]
  - PROSTATITIS [None]
  - PYELONEPHRITIS [None]
  - RECTAL CRAMPS [None]
  - SINUSITIS [None]
  - SLEEP APNOEA SYNDROME [None]
  - URETHRAL STRICTURE [None]
  - URINARY TRACT INFECTION BACTERIAL [None]
  - URINARY TRACT INFECTION PSEUDOMONAL [None]
